FAERS Safety Report 19089310 (Version 1)
Quarter: 2021Q2

REPORT INFORMATION
  Report Type: Spontaneous
  Country: FR (occurrence: FR)
  Receive Date: 20210403
  Receipt Date: 20210403
  Transmission Date: 20210717
  Serious: Yes (Other)
  Sender: FDA-Public Use
  Company Number: FR-ACCORD-221626

PATIENT
  Age: 61 Year
  Sex: Male

DRUGS (12)
  1. CISPLATIN. [Suspect]
     Active Substance: CISPLATIN
     Indication: LUNG ADENOCARCINOMA
     Route: 041
     Dates: start: 20200615, end: 20200819
  2. RAMIPRIL. [Concomitant]
     Active Substance: RAMIPRIL
     Indication: HYPERTENSION
     Route: 048
  3. EUPANTOL [Concomitant]
     Active Substance: PANTOPRAZOLE SODIUM
     Indication: GASTROOESOPHAGEAL REFLUX DISEASE
     Dosage: 20 MG
     Route: 048
  4. KARDEGIC [Concomitant]
     Active Substance: ASPIRIN DL-LYSINE
     Indication: VASCULAR DISORDER PROPHYLAXIS
     Dosage: 75 MG
     Route: 048
     Dates: start: 2013
  5. STAGID [Concomitant]
     Active Substance: METFORMIN PAMOATE
     Indication: DIABETES MELLITUS
     Route: 048
  6. FOLIC ACID. [Concomitant]
     Active Substance: FOLIC ACID
     Indication: PREMEDICATION
     Route: 048
     Dates: start: 202006
  7. LEVOTHYROX [Concomitant]
     Active Substance: LEVOTHYROXINE
     Indication: PRODUCT USED FOR UNKNOWN INDICATION
     Route: 048
  8. CYANOCOBALAMIN. [Concomitant]
     Active Substance: CYANOCOBALAMIN
     Indication: PREMEDICATION
     Route: 048
     Dates: start: 202006
  9. PEMBROLIZUMAB. [Suspect]
     Active Substance: PEMBROLIZUMAB
     Indication: LUNG ADENOCARCINOMA
     Route: 041
     Dates: start: 20191206, end: 20200930
  10. DAFALGAN [Concomitant]
     Active Substance: ACETAMINOPHEN
     Indication: PAIN
     Route: 048
  11. ALIMTA [Suspect]
     Active Substance: PEMETREXED DISODIUM
     Indication: LUNG ADENOCARCINOMA
     Route: 041
     Dates: start: 20200615, end: 20200930
  12. TAHOR [Concomitant]
     Active Substance: ATORVASTATIN CALCIUM
     Indication: DYSLIPIDAEMIA
     Dosage: 40 MG
     Route: 048

REACTIONS (1)
  - Hepatitis [Recovered/Resolved]

NARRATIVE: CASE EVENT DATE: 20200928
